FAERS Safety Report 14663379 (Version 1)
Quarter: 2018Q1

REPORT INFORMATION
  Report Type: Spontaneous
  Country: US (occurrence: US)
  Receive Date: 20180321
  Receipt Date: 20180321
  Transmission Date: 20180509
  Serious: No
  Sender: FDA-Public Use
  Company Number: US-PFIZER INC-2018112139

PATIENT
  Age: 83 Year
  Sex: Female
  Weight: 50 kg

DRUGS (4)
  1. IBRANCE [Interacting]
     Active Substance: PALBOCICLIB
     Dosage: 100 MG, UNK
  2. IBRANCE [Suspect]
     Active Substance: PALBOCICLIB
     Indication: BREAST CANCER
     Dosage: 125 MG, CYCLIC (ONCE A DAY FOR 21 DAYS AND THEN SKIP A WEEK)
     Route: 048
  3. CELEBREX [Interacting]
     Active Substance: CELECOXIB
     Indication: ANXIETY
     Dosage: 40 MG, 1X/DAY
     Route: 048
  4. CELEBREX [Interacting]
     Active Substance: CELECOXIB
     Dosage: 10 MG, 1X/DAY
     Route: 048

REACTIONS (1)
  - Drug interaction [Unknown]
